FAERS Safety Report 8155855-4 (Version None)
Quarter: 2012Q1

REPORT INFORMATION
  Report Type: 
  Country: None (occurrence: None)
  Receive Date: 20120222
  Receipt Date: 20120210
  Transmission Date: 20120608
  Serious: Yes (Hospitalization, Other)
  Sender: FDA-Public Use
  Company Number: NL-JNJFOC-20120112435

PATIENT
  Age: 31 Year
  Sex: Female

DRUGS (9)
  1. ENTOCORT EC [Suspect]
     Indication: COLITIS ULCERATIVE
     Route: 065
  2. BECLOMETASON [Concomitant]
     Indication: COLITIS ULCERATIVE
     Route: 054
     Dates: start: 20110704
  3. PREDNISONE [Suspect]
     Indication: COLITIS ULCERATIVE
     Route: 065
  4. AZATHIOPRINE [Suspect]
     Indication: COLITIS ULCERATIVE
     Route: 065
     Dates: start: 20090608
  5. URSOCHOL [Concomitant]
  6. CLEMASTINE FUMARATE [Concomitant]
  7. REMICADE [Suspect]
     Indication: CROHN'S DISEASE
     Route: 042
     Dates: start: 20080603, end: 20090610
  8. REMICADE [Suspect]
     Indication: COLITIS ULCERATIVE
     Route: 042
     Dates: start: 20080603, end: 20090610
  9. PREDNISONE [Suspect]
     Route: 065
     Dates: start: 20080917

REACTIONS (4)
  - FOETAL DEATH [None]
  - MATERNAL EXPOSURE BEFORE PREGNANCY [None]
  - PREMATURE LABOUR [None]
  - PLACENTA PRAEVIA HAEMORRHAGE [None]
